FAERS Safety Report 5047472-X (Version None)
Quarter: 2006Q3

REPORT INFORMATION
  Report Type: 
  Country: None (occurrence: None)
  Receive Date: 20060711
  Receipt Date: 20060627
  Transmission Date: 20061208
  Serious: Yes (Hospitalization, Other)
  Sender: FDA-Public Use
  Company Number: US-JNJFOC-20060700522

PATIENT
  Sex: Female
  Weight: 77.11 kg

DRUGS (4)
  1. DURAGESIC-100 [Suspect]
     Indication: PAIN
     Route: 062
  2. TYLENOL (CAPLET) [Suspect]
     Route: 065
  3. TYLENOL (CAPLET) [Suspect]
     Indication: DRUG USE FOR UNKNOWN INDICATION
     Route: 065
  4. ZOLOFT [Concomitant]
     Indication: DEPRESSION
     Route: 065

REACTIONS (4)
  - INTENTIONAL DRUG MISUSE [None]
  - SCAR [None]
  - SUICIDE ATTEMPT [None]
  - THERMAL BURN [None]
